FAERS Safety Report 16816821 (Version 1)
Quarter: 2019Q4

REPORT INFORMATION
  Report Type: Spontaneous
  Country: US (occurrence: US)
  Receive Date: 20190917
  Receipt Date: 20190917
  Transmission Date: 20200122
  Serious: Yes (Other)
  Sender: FDA-Public Use
  Company Number: None

PATIENT
  Age: 56 Year
  Sex: Male
  Weight: 99.9 kg

DRUGS (2)
  1. FEBUXOSTAT. [Suspect]
     Active Substance: FEBUXOSTAT
     Indication: GOUT
     Dosage: ?          QUANTITY:1 TABLET(S);?
     Route: 048
     Dates: start: 20190831, end: 20190917
  2. ULORIC [Concomitant]
     Active Substance: FEBUXOSTAT

REACTIONS (11)
  - Blood uric acid increased [None]
  - Intentional dose omission [None]
  - Skin odour abnormal [None]
  - Hypertension [None]
  - Product substitution issue [None]
  - Angina pectoris [None]
  - Arrhythmia [None]
  - Ventricular extrasystoles [None]
  - Heart rate increased [None]
  - Flushing [None]
  - Tension [None]

NARRATIVE: CASE EVENT DATE: 20190901
